FAERS Safety Report 25035890 (Version 2)
Quarter: 2025Q2

REPORT INFORMATION
  Report Type: Spontaneous
  Country: HU (occurrence: HU)
  Receive Date: 20250304
  Receipt Date: 20250410
  Transmission Date: 20250717
  Serious: Yes (Other)
  Sender: ACCORD
  Company Number: HU-EMA-DD-20250130-7483181-061720

PATIENT
  Age: 73 Year
  Sex: Female

DRUGS (2)
  1. ZOLEDRONIC ACID [Suspect]
     Active Substance: ZOLEDRONIC ACID
     Indication: Metastases to bone
     Dosage: SOLUTION FOR INFUSION
  2. ZOLEDRONIC ACID [Suspect]
     Active Substance: ZOLEDRONIC ACID
     Indication: Metastases to lymph nodes
     Dosage: SOLUTION FOR INFUSION

REACTIONS (3)
  - Osteonecrosis of jaw [Recovered/Resolved]
  - Actinomycosis [Recovered/Resolved]
  - Oral cavity fistula [Recovered/Resolved]
